FAERS Safety Report 6684151-7 (Version None)
Quarter: 2010Q2

REPORT INFORMATION
  Report Type: 
  Country: None (occurrence: None)
  Receive Date: 20100416
  Receipt Date: 20100416
  Transmission Date: 20101027
  Serious: Yes (Hospitalization)
  Sender: FDA-Public Use
  Company Number: PHHO2008HU14261

PATIENT
  Sex: Female
  Weight: 55 kg

DRUGS (6)
  1. ACLASTA/ZOLEDRONATE T29581+A+SOLINJ [Suspect]
     Dosage: 5 MG ONCE A YEAR
     Route: 042
     Dates: start: 20051121
  2. CALCIUM [Concomitant]
  3. VITAMIN D [Concomitant]
  4. EDNYT [Concomitant]
     Indication: HYPERTENSION
     Dosage: UNK
     Dates: start: 20000601
  5. HYGROTON [Concomitant]
     Indication: HYPERTENSION
     Dosage: UNK
     Dates: start: 20080927
  6. DOXIUM [Concomitant]
     Indication: DIABETES MELLITUS
     Dosage: UNK
     Dates: start: 20041101

REACTIONS (5)
  - BLOOD GLUCOSE ABNORMAL [None]
  - DEEP VEIN THROMBOSIS [None]
  - GASTRIC POLYPS [None]
  - OEDEMA PERIPHERAL [None]
  - PAIN [None]
